FAERS Safety Report 4543072-6 (Version None)
Quarter: 2004Q4

REPORT INFORMATION
  Report Type: 
  Country: None (occurrence: None)
  Receive Date: 20041229
  Receipt Date: 20041217
  Transmission Date: 20050328
  Serious: Yes (Life-Threatening, Hospitalization)
  Sender: FDA-Public Use
  Company Number: 2004-FF-00441FF (1)

PATIENT
  Age: 39 Year
  Sex: Male

DRUGS (6)
  1. VIRAMUNE [Suspect]
     Indication: HIV INFECTION
     Dosage: 400 MG PO
     Route: 048
     Dates: start: 20040301
  2. OXACILLIN [Suspect]
     Dosage: PO
     Route: 048
     Dates: start: 20040311
  3. VALPROATE SODIUM [Concomitant]
  4. ORBENIN CAP [Concomitant]
  5. VALIUM [Concomitant]
  6. COMBIVIR [Concomitant]

REACTIONS (6)
  - HERPES SIMPLEX [None]
  - PHIMOSIS [None]
  - PHOTOPHOBIA [None]
  - RHABDOMYOLYSIS [None]
  - TOXIC EPIDERMAL NECROLYSIS [None]
  - TREATMENT NONCOMPLIANCE [None]
